FAERS Safety Report 5934999-9 (Version None)
Quarter: 2008Q4

REPORT INFORMATION
  Report Type: 
  Country: None (occurrence: None)
  Receive Date: 20081029
  Receipt Date: 20081029
  Transmission Date: 20090506
  Serious: No
  Sender: FDA-Public Use
  Company Number: None

PATIENT
  Sex: Female
  Weight: 81.6475 kg

DRUGS (2)
  1. ACTONEL [Suspect]
     Indication: OSTEOPOROSIS
     Dosage: 1 PER MONTH ORALLY
     Route: 048
     Dates: start: 20080918
  2. ACTONEL [Suspect]
     Indication: OSTEOPOROSIS
     Dosage: 1 PER MONTH ORALLY
     Route: 048
     Dates: start: 20081018

REACTIONS (5)
  - ARTHRALGIA [None]
  - IMPAIRED WORK ABILITY [None]
  - INFLUENZA [None]
  - MUSCULOSKELETAL DISORDER [None]
  - NAUSEA [None]
